FAERS Safety Report 24896009 (Version 1)
Quarter: 2025Q1

REPORT INFORMATION
  Report Type: Report from Study
  Country: GB (occurrence: GB)
  Receive Date: 20250128
  Receipt Date: 20250128
  Transmission Date: 20250409
  Serious: Yes (Other)
  Sender: SANDOZ
  Company Number: GB-SANDOZ-SDZ2024GB020758

PATIENT
  Age: 8 Year
  Sex: Male

DRUGS (2)
  1. OMNITROPE [Suspect]
     Active Substance: SOMATROPIN
     Indication: Hyperpituitarism
     Dosage: 0.30 MG, QD
     Route: 058
     Dates: start: 20240117
  2. OMNITROPE [Suspect]
     Active Substance: SOMATROPIN
     Dosage: 0.80 MG, QD
     Route: 058

REACTIONS (5)
  - Growth failure [Unknown]
  - Eye swelling [Unknown]
  - Pseudopapilloedema [Unknown]
  - Incorrect dose administered [Unknown]
  - Incorrect route of product administration [Unknown]

NARRATIVE: CASE EVENT DATE: 20241111
